FAERS Safety Report 9208245 (Version 1)
Quarter: 2013Q2

REPORT INFORMATION
  Report Type: Spontaneous
  Country: US (occurrence: US)
  Receive Date: 20130403
  Receipt Date: 20130403
  Transmission Date: 20140414
  Serious: Yes (Other)
  Sender: FDA-Public Use
  Company Number: US-ACTAVIS-2013-05338

PATIENT
  Age: 49 Year
  Sex: Female

DRUGS (6)
  1. VANCOMYCIN HYDROCHLORIDE [Suspect]
     Indication: PRODUCT USED FOR UNKNOWN INDICATION
     Dosage: UNK UNK, UNKNOWN
     Route: 065
  2. FLUOXETINE HYDROCHLORIDE (UNKNOWN) [Suspect]
     Indication: DEPRESSION
     Dosage: UNK UNK, UNKNOWN
     Route: 065
  3. HYDROCODONE (UNKNOWN) [Suspect]
     Indication: PAIN
     Dosage: UNK UNK, PRN
     Route: 065
  4. TICARCILLIN/CLAVULANATE POTASSIUM [Suspect]
     Indication: PRODUCT USED FOR UNKNOWN INDICATION
     Dosage: UNK UNK, UNKNOWN
     Route: 065
  5. CEFAZOLIN [Concomitant]
     Indication: PRODUCT USED FOR UNKNOWN INDICATION
     Dosage: UNK UNK, SINGLE, INTRAOPERATIVELY
     Route: 065
  6. FLUCONAZOLE [Concomitant]
     Indication: ORAL CANDIDIASIS
     Dosage: UNK UNK, SINGLE
     Route: 065

REACTIONS (2)
  - Linear IgA disease [Recovered/Resolved]
  - Stevens-Johnson syndrome [None]
